FAERS Safety Report 9700198 (Version 1)
Quarter: 2013Q4

REPORT INFORMATION
  Report Type: Spontaneous
  Country: JP (occurrence: JP)
  Receive Date: 20131121
  Receipt Date: 20131121
  Transmission Date: 20140711
  Serious: Yes (Death)
  Sender: FDA-Public Use
  Company Number: JP-CELGENEUS-087-50794-13113253

PATIENT
  Sex: 0

DRUGS (3)
  1. VIDAZA [Suspect]
     Indication: MYELODYSPLASTIC SYNDROME
     Dosage: 75 MILLIGRAM/SQ. METER
     Route: 041
     Dates: start: 201103, end: 201306
  2. ARA C [Suspect]
     Indication: MYELODYSPLASTIC SYNDROME
     Dosage: 20 MILLIGRAM/SQ. METER
     Route: 058
     Dates: start: 201103, end: 201306
  3. ACLARUBICIN HYDROCHLORIDE [Suspect]
     Indication: MYELODYSPLASTIC SYNDROME
     Dosage: 20 MILLIGRAM/SQ. METER
     Route: 041
     Dates: start: 201103, end: 201306

REACTIONS (1)
  - Myelodysplastic syndrome [Fatal]
